FAERS Safety Report 5292522-9 (Version None)
Quarter: 2007Q2

REPORT INFORMATION
  Report Type: 
  Country: None (occurrence: None)
  Receive Date: 20070410
  Receipt Date: 20070327
  Transmission Date: 20071010
  Serious: Yes (Other)
  Sender: FDA-Public Use
  Company Number: FRWYE873118DEC06

PATIENT
  Sex: Female
  Weight: 49 kg

DRUGS (3)
  1. ENBREL [Suspect]
     Indication: RHEUMATOID ARTHRITIS
     Dosage: UNKNOWN
     Route: 058
     Dates: start: 20010503, end: 20061018
  2. MICROVAL [Concomitant]
     Indication: ORAL CONTRACEPTION
     Route: 048
     Dates: start: 20030101
  3. ZESTRIL [Concomitant]
     Indication: HYPERTENSION
     Route: 048
     Dates: start: 20001001

REACTIONS (2)
  - MYCOSIS FUNGOIDES [None]
  - RHEUMATOID ARTHRITIS [None]
